FAERS Safety Report 7580955-7 (Version None)
Quarter: 2011Q2

REPORT INFORMATION
  Report Type: 
  Country: None (occurrence: None)
  Receive Date: 20110629
  Receipt Date: 20110617
  Transmission Date: 20111010
  Serious: Yes (Hospitalization)
  Sender: FDA-Public Use
  Company Number: US-ACTELION-A-US2011-50626

PATIENT

DRUGS (5)
  1. HEPARIN [Concomitant]
  2. COUMADIN [Concomitant]
  3. SILDENAFIL CITRATE [Concomitant]
  4. EPOPROSTENOL SODIUM [Suspect]
     Indication: PULMONARY ARTERIAL HYPERTENSION
     Dosage: 14 NG/KG, PER MIN
     Route: 042
     Dates: start: 20110310
  5. TRACLEER [Concomitant]
     Indication: PULMONARY ARTERIAL HYPERTENSION
     Dosage: UNK
     Route: 048
     Dates: start: 20040923

REACTIONS (1)
  - CARDIAC DISORDER [None]
